FAERS Safety Report 5236819-7 (Version None)
Quarter: 2007Q1

REPORT INFORMATION
  Report Type: 
  Country: None (occurrence: None)
  Receive Date: 20061208
  Receipt Date: 20050718
  Transmission Date: 20070707
  Serious: Yes (Other)
  Sender: FDA-Public Use
  Company Number: 2005UW10681

PATIENT
  Age: 94 Year
  Sex: Male

DRUGS (7)
  1. CRESTOR [Suspect]
     Indication: BLOOD CHOLESTEROL INCREASED
  2. AMBIEN [Concomitant]
  3. ARICEPT [Concomitant]
  4. OMEPRAZOLE [Concomitant]
  5. ALEVE [Concomitant]
  6. ASPIRIN [Concomitant]
  7. TOPROL-XL [Concomitant]

REACTIONS (4)
  - ANXIETY [None]
  - INSOMNIA [None]
  - MANIA [None]
  - RESTLESSNESS [None]
